FAERS Safety Report 23942236 (Version 5)
Quarter: 2025Q3

REPORT INFORMATION
  Report Type: Spontaneous
  Country: US (occurrence: US)
  Receive Date: 20240605
  Receipt Date: 20250919
  Transmission Date: 20251021
  Serious: No
  Sender: CALLIDITAS THERAPEUTICS AB
  Company Number: US-Calliditas-2024CAL00874

PATIENT
  Age: 44 Year
  Sex: Male
  Weight: 50.3 kg

DRUGS (11)
  1. TARPEYO [Suspect]
     Active Substance: BUDESONIDE
     Indication: IgA nephropathy
     Route: 048
     Dates: start: 20240424
  2. TELMISARTAN [Concomitant]
     Active Substance: TELMISARTAN
  3. FINASTERIDE [Concomitant]
     Active Substance: FINASTERIDE
  4. VITAMIN B [Concomitant]
     Active Substance: VITAMIN B
  5. VITAMIN D NOS [Concomitant]
     Active Substance: CHOLECALCIFEROL\ERGOCALCIFEROL
  6. AMLODIPINE [Concomitant]
     Active Substance: AMLODIPINE BESYLATE
  7. SERTRALINE [Concomitant]
     Active Substance: SERTRALINE HYDROCHLORIDE
  8. BISOPROLOL [Concomitant]
     Active Substance: BISOPROLOL
  9. LOKELMA [SODIUM ZIRCONIUM CYCLOSILICATE] [Concomitant]
  10. PREDNISONE [Concomitant]
     Active Substance: PREDNISONE
  11. OMEPRAZOLE [Concomitant]
     Active Substance: OMEPRAZOLE

REACTIONS (5)
  - Blood pressure increased [Unknown]
  - Headache [Not Recovered/Not Resolved]
  - Insomnia [Not Recovered/Not Resolved]
  - Heart rate increased [Unknown]
  - Proteinuria [Not Recovered/Not Resolved]

NARRATIVE: CASE EVENT DATE: 20240501
